FAERS Safety Report 6281956-1 (Version None)
Quarter: 2009Q3

REPORT INFORMATION
  Report Type: 
  Country: None (occurrence: None)
  Receive Date: 20090724
  Receipt Date: 20090720
  Transmission Date: 20100115
  Serious: Yes (Hospitalization)
  Sender: FDA-Public Use
  Company Number: AU-BRISTOL-MYERS SQUIBB COMPANY-14709182

PATIENT
  Age: 78 Year
  Sex: Female
  Weight: 55 kg

DRUGS (5)
  1. AVAPRO [Suspect]
     Indication: ESSENTIAL HYPERTENSION
     Route: 048
  2. FOSAMAX [Suspect]
     Indication: OSTEOPOROSIS
     Dosage: FORM: TABLETS.
     Route: 048
  3. ISOPTIN [Suspect]
     Indication: ESSENTIAL HYPERTENSION
     Dosage: FORM: TABLETS.
     Route: 048
     Dates: end: 20071215
  4. NEXIUM [Suspect]
     Indication: OESOPHAGEAL DISORDER
  5. ZOCOR [Suspect]
     Indication: METABOLIC DISORDER
     Dosage: 1 DOSAGE FORM = 1 (UNITS NOT MENTIONED) DOSE UNSPECIFIED. FORM: TABLET.
     Route: 048

REACTIONS (2)
  - CONSTIPATION [None]
  - INTESTINAL OBSTRUCTION [None]
